FAERS Safety Report 4735418-0 (Version None)
Quarter: 2005Q3

REPORT INFORMATION
  Report Type: 
  Country: None (occurrence: None)
  Receive Date: 20050801
  Receipt Date: 20050801
  Transmission Date: 20060218
  Serious: Yes (Life-Threatening, Hospitalization)
  Sender: FDA-Public Use
  Company Number: None

PATIENT
  Age: 71 Year
  Sex: Male
  Weight: 95 kg

DRUGS (1)
  1. GATIFLOXACIN [Suspect]
     Indication: WOUND
     Dosage: 400MG PO QD
     Route: 048
     Dates: start: 20041108, end: 20050107

REACTIONS (2)
  - HYPERGLYCAEMIA [None]
  - SHOULDER PAIN [None]
